FAERS Safety Report 7326660-3 (Version None)
Quarter: 2011Q1

REPORT INFORMATION
  Report Type: 
  Country: None (occurrence: None)
  Receive Date: 20110223
  Receipt Date: 20110214
  Transmission Date: 20110831
  Serious: Yes (Death, Hospitalization)
  Sender: FDA-Public Use
  Company Number: UTC-005224

PATIENT
  Age: 41 Year
  Sex: Male

DRUGS (12)
  1. TRACLEER [Concomitant]
  2. DILTIAZEM [Concomitant]
  3. POTASSIUM (POTASSIUM) [Concomitant]
  4. WARFARIN (WARFARIN) [Concomitant]
  5. ASPIRIN [Concomitant]
  6. OMEPRAZOLE [Concomitant]
  7. FLUOXETINE [Concomitant]
  8. LISINOPRIL [Suspect]
  9. REVATIO [Concomitant]
  10. REMODULIN [Suspect]
     Dosage: 86.4 UG/KG (0.06 UG/KG, 1 IN 1 MIN), INTRAVENOUS
     Route: 042
     Dates: start: 20100601, end: 20110211
  11. TEMAZPAM (TEMAZEPAM) [Concomitant]
  12. VENTOLIN [Concomitant]

REACTIONS (2)
  - MULTI-ORGAN FAILURE [None]
  - DEVICE RELATED SEPSIS [None]
